FAERS Safety Report 19467750 (Version 1)
Quarter: 2021Q2

REPORT INFORMATION
  Report Type: Spontaneous
  Country: US (occurrence: US)
  Receive Date: 20210628
  Receipt Date: 20210628
  Transmission Date: 20210717
  Serious: Yes (Disabling)
  Sender: FDA-Public Use
  Company Number: None

PATIENT
  Age: 42 Year
  Sex: Female
  Weight: 58.5 kg

DRUGS (10)
  1. MELATONIN [Concomitant]
     Active Substance: MELATONIN
  2. UBIQUINOL [Concomitant]
     Active Substance: UBIQUINOL
  3. FISH OIL [Concomitant]
     Active Substance: FISH OIL
  4. LEVOTHYROXINE. [Concomitant]
     Active Substance: LEVOTHYROXINE
  5. PRE?NATAL [Concomitant]
  6. SELENIUM [Concomitant]
     Active Substance: SELENIUM
  7. VYVANSE [Suspect]
     Active Substance: LISDEXAMFETAMINE DIMESYLATE
     Indication: ATTENTION DEFICIT HYPERACTIVITY DISORDER
     Dosage: ?          QUANTITY:1 CAPSULE(S);?
     Route: 048
     Dates: start: 20210427, end: 20210604
  8. ESTROGEN/PROGESTERONE [Concomitant]
     Active Substance: ESTROGENS\PROGESTERONE
  9. PPQ [Concomitant]
  10. WEST WHEAT GRASS [Concomitant]
     Active Substance: PASCOPYRUM SMITHII POLLEN

REACTIONS (1)
  - Tardive dyskinesia [None]

NARRATIVE: CASE EVENT DATE: 20210529
